FAERS Safety Report 14046469 (Version 4)
Quarter: 2020Q2

REPORT INFORMATION
  Report Type: Report from Study
  Country: US (occurrence: US)
  Receive Date: 20171005
  Receipt Date: 20200420
  Transmission Date: 20200713
  Serious: Yes (Hospitalization)
  Sender: FDA-Public Use
  Company Number: US-ACTELION-A-NJ2016-140362

PATIENT
  Age: 39 Year
  Sex: Female

DRUGS (5)
  1. TOPAMAX [Concomitant]
     Active Substance: TOPIRAMATE
  2. DEPAKOTE [Concomitant]
     Active Substance: DIVALPROEX SODIUM
  3. OPSUMIT [Suspect]
     Active Substance: MACITENTAN
     Indication: PULMONARY HYPERTENSION
     Dosage: 10 MG, QD
     Route: 048
     Dates: start: 20160509
  4. ADCIRCA [Concomitant]
     Active Substance: TADALAFIL
     Dosage: 40 MG, QD
     Dates: start: 20160901
  5. TYVASO [Concomitant]
     Active Substance: TREPROSTINIL

REACTIONS (8)
  - Polydipsia [Unknown]
  - Weight increased [Recovering/Resolving]
  - Gastroenteritis viral [Unknown]
  - Headache [Unknown]
  - Paraesthesia [Recovering/Resolving]
  - Migraine [Recovered/Resolved]
  - Fluid retention [Recovered/Resolved]
  - Hyperphagia [Unknown]

NARRATIVE: CASE EVENT DATE: 20160606
